FAERS Safety Report 4724877-5 (Version None)
Quarter: 2005Q3

REPORT INFORMATION
  Report Type: 
  Country: None (occurrence: None)
  Receive Date: 20050720
  Receipt Date: 20050720
  Transmission Date: 20060218
  Serious: Yes (Death)
  Sender: FDA-Public Use
  Company Number: None

PATIENT
  Age: 70 Year
  Sex: Female
  Weight: 86.1834 kg

DRUGS (21)
  1. CUBICIN [Suspect]
     Indication: WOUND INFECTION STAPHYLOCOCCAL
     Dosage: 500MG Q24HOURS INTRAVENOU
     Route: 042
     Dates: start: 20050621, end: 20050629
  2. DOCUSATE SODIUM [Concomitant]
  3. BUDESONIDE [Concomitant]
  4. EZITIMBE [Concomitant]
  5. LOVENOX [Concomitant]
  6. FUROSEMIDE [Concomitant]
  7. NOVULI N-N [Concomitant]
  8. NOVULIN-R [Concomitant]
  9. METOCLOPRAMIDE [Concomitant]
  10. METOPROLOL [Concomitant]
  11. LORTAB [Concomitant]
  12. METRONIDAZOLE [Concomitant]
  13. MORPHINE [Concomitant]
  14. NIACIN [Concomitant]
  15. MYLANTA [Concomitant]
  16. K-DUR 10 [Concomitant]
  17. ONDANSETRON [Concomitant]
  18. RANITIDINE [Concomitant]
  19. CRESTOR [Concomitant]
  20. NITROGLYCERIN [Concomitant]
  21. SPIREVA [Concomitant]

REACTIONS (4)
  - DISSEMINATED INTRAVASCULAR COAGULATION [None]
  - HEPATOTOXICITY [None]
  - INTERNATIONAL NORMALISED RATIO INCREASED [None]
  - NEPHROPATHY TOXIC [None]
